FAERS Safety Report 10290617 (Version 4)
Quarter: 2014Q3

REPORT INFORMATION
  Report Type: Spontaneous
  Country: JP (occurrence: JP)
  Receive Date: 20140710
  Receipt Date: 20140902
  Transmission Date: 20150326
  Serious: Yes (Other)
  Sender: FDA-Public Use
  Company Number: JP-ASTELLAS-2014JP010304

PATIENT
  Age: 77 Year
  Sex: Male

DRUGS (4)
  1. CELECOX [Concomitant]
     Active Substance: CELECOXIB
     Indication: PAIN
     Route: 048
     Dates: start: 20120813
  2. NOVAMIN                            /00013301/ [Concomitant]
     Active Substance: PROCHLORPERAZINE MALEATE
     Indication: PRODUCT USED FOR UNKNOWN INDICATION
     Dosage: UNK UNK, UNKNOWN FREQ.
     Route: 048
  3. DUROTEP [Suspect]
     Active Substance: FENTANYL
     Indication: PAIN
     Dosage: 16.8 MG, EVERY 3 DAYS
     Route: 062
     Dates: start: 20131213
  4. XTANDI [Suspect]
     Active Substance: ENZALUTAMIDE
     Indication: HORMONE-REFRACTORY PROSTATE CANCER
     Route: 048
     Dates: start: 20140530

REACTIONS (1)
  - Nausea [Recovering/Resolving]

NARRATIVE: CASE EVENT DATE: 20140603
